FAERS Safety Report 6481786-1 (Version None)
Quarter: 2009Q4

REPORT INFORMATION
  Report Type: 
  Country: None (occurrence: None)
  Receive Date: 20091208
  Receipt Date: 20090325
  Transmission Date: 20100525
  Serious: No
  Sender: FDA-Public Use
  Company Number: US-AMGEN-KDL340160

PATIENT
  Sex: Female

DRUGS (4)
  1. ENBREL [Suspect]
     Indication: RHEUMATOID ARTHRITIS
     Route: 058
  2. SULFASALAZINE [Concomitant]
     Route: 048
  3. PLAQUENIL [Concomitant]
     Route: 048
  4. METHOTREXATE [Concomitant]
     Route: 047

REACTIONS (6)
  - BRONCHITIS [None]
  - COUGH [None]
  - EPISTAXIS [None]
  - FUNGAL INFECTION [None]
  - INFLUENZA LIKE ILLNESS [None]
  - PYREXIA [None]
